FAERS Safety Report 6904716 (Version 3)
Quarter: 2013Q2

REPORT INFORMATION
  Report Type: Report from Study
  Country: DE (occurrence: DE)
  Receive Date: 20090209
  Receipt Date: 20130627
  Transmission Date: 20140414
  Serious: Yes (Hospitalization)
  Sender: FDA-Public Use
  Company Number: PHHO2009DE01683

PATIENT
  Sex: 0

DRUGS (6)
  1. ZOLEDRONATE [Suspect]
     Indication: BREAST CANCER
     Dosage: 4 MG, UNK
     Route: 042
     Dates: start: 20080918, end: 20080918
  2. ZOLEDRONATE [Suspect]
     Dosage: 4 MG, UNK
     Route: 042
     Dates: start: 20090126
  3. VITAMIN D [Concomitant]
  4. CALCIUM [Concomitant]
  5. NITRENDIPIN [Concomitant]
     Indication: HYPERTENSION
  6. ARIMIDEX [Concomitant]
     Indication: HORMONE LEVEL ABNORMAL

REACTIONS (3)
  - Tooth disorder [Recovered/Resolved]
  - Inflammation [Recovered/Resolved]
  - Pain [Recovered/Resolved]
